FAERS Safety Report 10807888 (Version 1)
Quarter: 2015Q1

REPORT INFORMATION
  Report Type: Report from Study
  Country: US (occurrence: US)
  Receive Date: 20150217
  Receipt Date: 20150217
  Transmission Date: 20150721
  Serious: No
  Sender: FDA-Public Use
  Company Number: US-ABBVIE-14K-163-1255677-00

PATIENT
  Age: 26 Year
  Sex: Male

DRUGS (1)
  1. HUMIRA [Suspect]
     Active Substance: ADALIMUMAB
     Indication: PSORIASIS
     Route: 058
     Dates: start: 20140408

REACTIONS (6)
  - Food poisoning [Recovering/Resolving]
  - Vomiting [Recovering/Resolving]
  - Heat exhaustion [Recovering/Resolving]
  - Dehydration [Recovering/Resolving]
  - Loss of consciousness [Recovering/Resolving]
  - Diarrhoea [Recovering/Resolving]

NARRATIVE: CASE EVENT DATE: 20140628
